FAERS Safety Report 20074478 (Version 1)
Quarter: 2021Q4

REPORT INFORMATION
  Report Type: Spontaneous
  Country: US (occurrence: None)
  Receive Date: 20211115
  Receipt Date: 20211115
  Transmission Date: 20220303
  Serious: Yes (Other)
  Sender: FDA-Public Use
  Company Number: None

PATIENT
  Age: 72 Year
  Sex: Female
  Weight: 85.05 kg

DRUGS (5)
  1. GABAPENTIN [Suspect]
     Active Substance: GABAPENTIN
     Indication: Vertigo
     Dosage: FREQUENCY : AT BEDTIME;?
     Route: 048
     Dates: start: 20211103, end: 20211111
  2. METOPROLOL TARTRATE [Concomitant]
     Active Substance: METOPROLOL TARTRATE
  3. ASPIRIN [Concomitant]
     Active Substance: ASPIRIN
  4. multi vitamin for her over 50 [Concomitant]
  5. PROBIOTICS NOS [Concomitant]
     Active Substance: PROBIOTICS NOS

REACTIONS (8)
  - Sedation [None]
  - Atrial fibrillation [None]
  - Chest pain [None]
  - Heart rate irregular [None]
  - Pain in jaw [None]
  - Dyspnoea [None]
  - Asthenia [None]
  - Feeling abnormal [None]

NARRATIVE: CASE EVENT DATE: 20211112
